FAERS Safety Report 7804472-1 (Version None)
Quarter: 2011Q4

REPORT INFORMATION
  Report Type: 
  Country: None (occurrence: None)
  Receive Date: 20111010
  Receipt Date: 20110929
  Transmission Date: 20120403
  Serious: Yes (Death, Hospitalization, Other)
  Sender: FDA-Public Use
  Company Number: PHHY2011US88341

PATIENT
  Age: 50 Year
  Sex: Male

DRUGS (9)
  1. CAPECITABINE [Concomitant]
  2. OCTREOTIDE ACETATE [Suspect]
     Dosage: 300 UG, TID
     Route: 058
  3. OCTREOTIDE ACETATE [Suspect]
     Indication: BLOOD CORTICOTROPHIN INCREASED
     Dosage: 300 UG, TID
     Route: 058
  4. TEMOZOLOMIDE [Concomitant]
     Dosage: 200 MG/M2/DAY FOR 5 DAYS
  5. CISPLATIN [Concomitant]
     Indication: SMALL CELL CARCINOMA
  6. METYRAPONE [Suspect]
     Dosage: 250 MG, BID
     Route: 048
  7. ETOPOSIDE [Concomitant]
     Indication: SMALL CELL CARCINOMA
  8. CABERGOLINE [Suspect]
     Dosage: 0.5 MG, TWICE A WEEK
     Route: 048
  9. ROSIGLITAZONE [Concomitant]
     Dosage: 8 MG, PER DAY

REACTIONS (20)
  - DYSPHAGIA [None]
  - BACK PAIN [None]
  - HYPOAESTHESIA [None]
  - FATIGUE [None]
  - DEATH [None]
  - EYE MOVEMENT DISORDER [None]
  - BLOOD CORTICOTROPHIN INCREASED [None]
  - PUPILLARY REFLEX IMPAIRED [None]
  - METASTASES TO BONE [None]
  - MEMORY IMPAIRMENT [None]
  - HYPERGLYCAEMIA [None]
  - CORTISOL FREE URINE INCREASED [None]
  - SKIN HYPERPIGMENTATION [None]
  - HEMIANOPIA [None]
  - ASPIRATION [None]
  - ANOSMIA [None]
  - AREFLEXIA [None]
  - NEOPLASM PROGRESSION [None]
  - MUSCULAR WEAKNESS [None]
  - HEADACHE [None]
